FAERS Safety Report 9681903 (Version 1)
Quarter: 2013Q4

REPORT INFORMATION
  Report Type: Spontaneous
  Country: IT (occurrence: CH)
  Receive Date: 20131111
  Receipt Date: 20131111
  Transmission Date: 20140711
  Serious: Yes (Hospitalization)
  Sender: FDA-Public Use
  Company Number: CH-FRI-1000050946

PATIENT
  Sex: Female
  Weight: 44 kg

DRUGS (9)
  1. FOSFOMYCIN [Suspect]
     Indication: URINARY TRACT INFECTION
     Dosage: 3 GRAMS
     Route: 048
     Dates: start: 20130913, end: 20130913
  2. COVERSUM N [Suspect]
     Indication: CARDIOMYOPATHY
     Dosage: 10 MG
     Route: 048
     Dates: start: 20130822, end: 20130923
  3. PLAVIX [Suspect]
     Indication: CARDIOMYOPATHY
     Dosage: 32.1429 MG
     Dates: start: 2008
  4. AMLODIPINE [Concomitant]
     Indication: ESSENTIAL HYPERTENSION
     Dosage: 10 MG
     Dates: start: 2008
  5. BELOC-ZOC COMP [Concomitant]
     Dosage: 100 MG
     Dates: start: 2010
  6. VITAMINE D3 B.O.N. [Concomitant]
     Dosage: 800 U
     Route: 048
  7. PROLIA [Concomitant]
     Dosage: 60 MG TWICE A YEAR
     Dates: end: 20130828
  8. NEUPOGEN [Concomitant]
     Dates: start: 20130919
  9. CETIRIZINE [Concomitant]
     Dates: start: 20130916, end: 20130916

REACTIONS (2)
  - Neutropenia [Recovered/Resolved]
  - Pruritus [Recovered/Resolved]
